FAERS Safety Report 4895790-8 (Version None)
Quarter: 2006Q1

REPORT INFORMATION
  Report Type: 
  Country: None (occurrence: None)
  Receive Date: 20060124
  Receipt Date: 20060112
  Transmission Date: 20060701
  Serious: Yes (Other)
  Sender: FDA-Public Use
  Company Number: 2006BH000681

PATIENT
  Age: 40 Year
  Sex: Female

DRUGS (4)
  1. IMMUNE GLOBULIN INTRAVENOUS (HUMAN) [Suspect]
     Indication: DEMYELINATING POLYNEUROPATHY
     Dosage: SEE IMAGE
     Route: 042
  2. PREDNISOLONE [Concomitant]
  3. AZATHIOPRINE [Concomitant]
  4. ACETYLSALICYLIC ACID SRT [Concomitant]

REACTIONS (5)
  - BLOOD VISCOSITY INCREASED [None]
  - CAROTID ARTERY STENOSIS [None]
  - FAT EMBOLISM [None]
  - OPTIC ATROPHY [None]
  - RETINAL VEIN OCCLUSION [None]
